FAERS Safety Report 8952288 (Version 1)
Quarter: 2012Q4

REPORT INFORMATION
  Report Type: 
  Country: US (occurrence: US)
  Receive Date: 20121205
  Receipt Date: 20121205
  Transmission Date: 20130627
  Serious: No
  Sender: FDA-Public Use
  Company Number: US-009507513-1211USA011772

PATIENT
  Sex: Male

DRUGS (3)
  1. VICTRELIS [Suspect]
     Indication: CHRONIC HEPATITIS C
     Dosage: 800 mg, tid
     Route: 048
     Dates: start: 201209
  2. PEGINTRON [Suspect]
     Route: 058
  3. RIBAPAK [Suspect]

REACTIONS (1)
  - Dysgeusia [Unknown]
